FAERS Safety Report 16112228 (Version 1)
Quarter: 2019Q1

REPORT INFORMATION
  Report Type: Spontaneous
  Country: US (occurrence: US)
  Receive Date: 20190220
  Receipt Date: 20190220
  Transmission Date: 20190418
  Serious: No
  Sender: FDA-Public Use
  Company Number: None

PATIENT
  Age: 69 Year
  Sex: Male
  Weight: 83 kg

DRUGS (3)
  1. GEMCITABINE [Suspect]
     Active Substance: GEMCITABINE\GEMCITABINE HYDROCHLORIDE
     Indication: PAIN
     Dosage: ?          OTHER ROUTE:OTHER?
     Dates: start: 20190115, end: 20190205
  2. GEMCITABINE [Suspect]
     Active Substance: GEMCITABINE\GEMCITABINE HYDROCHLORIDE
     Indication: POLLAKIURIA
     Dosage: ?          OTHER ROUTE:OTHER?
     Dates: start: 20190115, end: 20190205
  3. GEMCITABINE [Suspect]
     Active Substance: GEMCITABINE\GEMCITABINE HYDROCHLORIDE
     Indication: DYSURIA
     Dosage: ?          OTHER ROUTE:OTHER?
     Dates: start: 20190115, end: 20190205

REACTIONS (4)
  - Muscle spasms [None]
  - Micturition urgency [None]
  - Dysuria [None]
  - Penile burning sensation [None]

NARRATIVE: CASE EVENT DATE: 20190115
